FAERS Safety Report 13903509 (Version 4)
Quarter: 2019Q2

REPORT INFORMATION
  Report Type: Spontaneous
  Country: US (occurrence: US)
  Receive Date: 20170824
  Receipt Date: 20190424
  Transmission Date: 20190711
  Serious: No
  Sender: FDA-Public Use
  Company Number: US-PFIZER INC-2017363415

PATIENT
  Age: 76 Year
  Sex: Female
  Weight: 94 kg

DRUGS (1)
  1. XELJANZ [Suspect]
     Active Substance: TOFACITINIB CITRATE
     Indication: RHEUMATOID ARTHRITIS
     Dosage: 5 MG, 2X/DAY
     Route: 048

REACTIONS (4)
  - Pain [Not Recovered/Not Resolved]
  - Rash [Unknown]
  - Peripheral swelling [Unknown]
  - Malaise [Unknown]
